FAERS Safety Report 5597252-1 (Version None)
Quarter: 2008Q1

REPORT INFORMATION
  Report Type: 
  Country: None (occurrence: None)
  Receive Date: 20080121
  Receipt Date: 20080116
  Transmission Date: 20080703
  Serious: Yes (Death, Other)
  Sender: FDA-Public Use
  Company Number: PHBS2007NL06399

PATIENT
  Age: 68 Year
  Sex: Male

DRUGS (3)
  1. ZOMETA [Suspect]
     Indication: MULTIPLE MYELOMA
     Dosage: 4 MG MONTHLY
     Route: 042
     Dates: start: 20040901
  2. OXYCONTIN [Concomitant]
  3. IBUPROFEN [Concomitant]

REACTIONS (8)
  - BONE DISORDER [None]
  - DEATH [None]
  - DEBRIDEMENT [None]
  - OSTEONECROSIS [None]
  - PAIN IN JAW [None]
  - TOOTH EXTRACTION [None]
  - WOUND CLOSURE [None]
  - WOUND DEHISCENCE [None]
